FAERS Safety Report 5624006-X (Version None)
Quarter: 2008Q1

REPORT INFORMATION
  Report Type: 
  Country: None (occurrence: None)
  Receive Date: 20080208
  Receipt Date: 20080208
  Transmission Date: 20080703
  Serious: Yes (Hospitalization)
  Sender: FDA-Public Use
  Company Number: None

PATIENT
  Sex: Female
  Weight: 122.3 kg

DRUGS (4)
  1. FLUOROURACIL [Suspect]
     Dosage: 10920 MG
  2. CISPLATIN [Suspect]
     Dosage: 498 MG
  3. ERBITUX [Suspect]
     Dosage: 1950 MG
  4. COUMADIN [Concomitant]

REACTIONS (4)
  - DEHYDRATION [None]
  - DIARRHOEA [None]
  - INTERNATIONAL NORMALISED RATIO INCREASED [None]
  - RECTAL HAEMORRHAGE [None]
